FAERS Safety Report 7684703 (Version 4)
Quarter: 2013Q3

REPORT INFORMATION
  Report Type: Spontaneous
  Country: US (occurrence: US)
  Receive Date: 20101129
  Receipt Date: 20130820
  Transmission Date: 20140515
  Serious: Yes (Hospitalization, Other)
  Sender: FDA-Public Use
  Company Number: US-ROCHE-722589

PATIENT
  Age: 23 Year
  Sex: Male
  Weight: 65.8 kg

DRUGS (3)
  1. ACCUTANE [Suspect]
     Indication: ACNE CYSTIC
     Route: 048
     Dates: start: 19980713, end: 19980916
  2. ACCUTANE [Suspect]
     Route: 048
     Dates: start: 199811, end: 199903
  3. ACCUTANE [Suspect]
     Route: 048
     Dates: start: 200109, end: 200112

REACTIONS (13)
  - Perirectal abscess [Unknown]
  - Gastrointestinal injury [Unknown]
  - Colitis ulcerative [Unknown]
  - Inflammatory bowel disease [Unknown]
  - Anal fistula [Unknown]
  - Anal fissure [Unknown]
  - Enterocutaneous fistula [Unknown]
  - Gastroenteritis [Unknown]
  - Ingrown hair [Unknown]
  - Dry skin [Unknown]
  - Aphthous stomatitis [Unknown]
  - Rash [Unknown]
  - Polyarthritis [Unknown]
